FAERS Safety Report 5964096-8 (Version None)
Quarter: 2008Q4

REPORT INFORMATION
  Report Type: 
  Country: None (occurrence: None)
  Receive Date: 20081124
  Receipt Date: 20081118
  Transmission Date: 20090506
  Serious: Yes (Hospitalization)
  Sender: FDA-Public Use
  Company Number: US-B.I. PHARMACEUTICALS,INC./RIDGEFIELD-2008-BP-17468BP

PATIENT
  Age: 35 Year
  Sex: Female
  Weight: 64 kg

DRUGS (5)
  1. MOBIC [Suspect]
     Indication: BURSITIS
     Dates: end: 20081019
  2. LUNESTA [Suspect]
     Indication: INSOMNIA
     Route: 048
     Dates: start: 20070101, end: 20081019
  3. SKELAXIN [Suspect]
     Indication: BURSITIS
     Dates: end: 20081019
  4. VICODIN ES [Suspect]
     Indication: BURSITIS
     Dates: end: 20081019
  5. IBUPROFEN TABLETS [Concomitant]

REACTIONS (3)
  - CARBON MONOXIDE POISONING [None]
  - LOSS OF CONSCIOUSNESS [None]
  - PARASOMNIA [None]
